FAERS Safety Report 8220955-7 (Version None)
Quarter: 2012Q1

REPORT INFORMATION
  Report Type: 
  Country: None (occurrence: None)
  Receive Date: 20120320
  Receipt Date: 20120306
  Transmission Date: 20120608
  Serious: Yes (Other)
  Sender: FDA-Public Use
  Company Number: DE-MYLANLABS-2012S1005098

PATIENT
  Age: 46 Year
  Sex: Male

DRUGS (7)
  1. PREGABALIN [Interacting]
     Route: 065
  2. PREGABALIN [Interacting]
     Route: 065
  3. PREGABALIN [Interacting]
     Indication: ANXIETY
     Dosage: 150 MG/DAY, TITRATED UP TO 300MG TWO TIMES A DAY
     Route: 065
  4. CLOZAPINE [Interacting]
     Route: 065
  5. PREGABALIN [Interacting]
     Indication: PSYCHOMOTOR HYPERACTIVITY
     Dosage: 150 MG/DAY, TITRATED UP TO 300MG TWO TIMES A DAY
     Route: 065
  6. CLOZAPINE [Suspect]
     Indication: SCHIZOPHRENIA, CATATONIC TYPE
     Route: 065
  7. CLOZAPINE [Interacting]

REACTIONS (3)
  - SOMNOLENCE [None]
  - DRUG INTERACTION [None]
  - ANTIPSYCHOTIC DRUG LEVEL INCREASED [None]
